FAERS Safety Report 26017829 (Version 1)
Quarter: 2025Q4

REPORT INFORMATION
  Report Type: Spontaneous
  Country: US (occurrence: US)
  Receive Date: 20251110
  Receipt Date: 20251110
  Transmission Date: 20260117
  Serious: Yes (Other)
  Sender: AVERITAS
  Company Number: US-GRUNENTHAL-2025-124436

PATIENT
  Sex: Male

DRUGS (1)
  1. QUTENZA [Suspect]
     Active Substance: CAPSAICIN
     Indication: Diabetic neuropathy
     Dosage: UNK UNK, ONCE
     Route: 061
     Dates: start: 20251017, end: 20251017

REACTIONS (3)
  - Pain [Unknown]
  - Haemorrhage [Unknown]
  - Burning sensation [Unknown]

NARRATIVE: CASE EVENT DATE: 20251001
